FAERS Safety Report 6455162-1 (Version None)
Quarter: 2009Q4

REPORT INFORMATION
  Report Type: 
  Country: None (occurrence: None)
  Receive Date: 20091119
  Receipt Date: 20091110
  Transmission Date: 20100525
  Serious: Yes (Death, Other)
  Sender: FDA-Public Use
  Company Number: 2009-04694

PATIENT
  Age: 38 Year
  Sex: Male

DRUGS (6)
  1. VELCADE [Suspect]
     Indication: DRUG USE FOR UNKNOWN INDICATION
  2. REVLIMID [Suspect]
     Indication: MULTIPLE MYELOMA
     Dosage: 10 MG, UNK, ORAL
     Route: 048
     Dates: start: 20090101, end: 20090301
  3. DEXAMETHASONE [Concomitant]
  4. CYTOXAN [Concomitant]
  5. NEUPOGEN [Concomitant]
  6. BACTRIM [Concomitant]

REACTIONS (4)
  - FATIGUE [None]
  - MALIGNANT NEOPLASM PROGRESSION [None]
  - MULTIPLE MYELOMA [None]
  - WHITE BLOOD CELL COUNT DECREASED [None]
